FAERS Safety Report 8998714 (Version 2)
Quarter: 2013Q1

REPORT INFORMATION
  Report Type: Spontaneous
  Country: US (occurrence: US)
  Receive Date: 20130103
  Receipt Date: 20130122
  Transmission Date: 20140127
  Serious: Yes (Congenital Anomaly, Other)
  Sender: FDA-Public Use
  Company Number: US-PFIZER INC-2012327986

PATIENT
  Sex: Male

DRUGS (10)
  1. ZOLOFT [Suspect]
     Indication: DEPRESSION
     Dosage: UNK
     Route: 064
     Dates: start: 200301, end: 201112
  2. SERTRALINE HCL [Suspect]
     Indication: DEPRESSION
     Dosage: UNK
     Route: 064
     Dates: start: 200301, end: 201112
  3. PRENATAL VITAMINS [Concomitant]
     Dosage: UNK
     Route: 064
  4. CHANTIX [Concomitant]
     Dosage: UNK
     Route: 064
  5. NICODERM [Concomitant]
     Dosage: UNK
     Route: 064
  6. TRICOR [Concomitant]
     Dosage: UNK
     Route: 064
  7. CLARITIN-D [Concomitant]
     Dosage: UNK
     Route: 064
  8. ALLEGRA [Concomitant]
     Dosage: UNK
     Route: 064
  9. NASONEX [Concomitant]
     Dosage: UNK
     Route: 064
  10. RANITIDINE [Concomitant]
     Dosage: UNK
     Route: 064

REACTIONS (6)
  - Maternal exposure timing unspecified [Unknown]
  - Persistent foetal circulation [Unknown]
  - Atrial septal defect [Unknown]
  - Neonatal respiratory distress syndrome [Unknown]
  - Cardiac disorder [Unknown]
  - Congenital anomaly [Unknown]
